FAERS Safety Report 7686424-8 (Version None)
Quarter: 2011Q3

REPORT INFORMATION
  Report Type: 
  Country: None (occurrence: None)
  Receive Date: 20110811
  Receipt Date: 20110802
  Transmission Date: 20111222
  Serious: Yes (Other)
  Sender: FDA-Public Use
  Company Number: 2011-00843

PATIENT
  Age: 72 Year
  Sex: Female
  Weight: 73 kg

DRUGS (5)
  1. CALCIUM (CALCIUM CARBONATE) [Concomitant]
  2. ASPIRIN [Concomitant]
  3. ACETAMINOPHEN [Concomitant]
  4. LISINOPRIL [Concomitant]
  5. SIMAVASTATIN [Suspect]
     Indication: PRODUCT USED FOR UNKNOWN INDICATION
     Dates: start: 20110726

REACTIONS (1)
  - JOINT SWELLING [None]
